FAERS Safety Report 8541201-0 (Version None)
Quarter: 2012Q3

REPORT INFORMATION
  Report Type: 
  Country: None (occurrence: None)
  Receive Date: 20120726
  Receipt Date: 20110105
  Transmission Date: 20120928
  Serious: No
  Sender: FDA-Public Use
  Company Number: US-ASTRAZENECA-2011SE01602

PATIENT
  Age: 26 Year
  Sex: Male

DRUGS (3)
  1. SEROQUEL [Suspect]
     Indication: SLEEP DISORDER
     Route: 048
  2. SEROQUEL [Suspect]
     Indication: BIPOLAR DISORDER
     Route: 048
  3. SEROQUEL [Suspect]
     Indication: DEPRESSION
     Route: 048

REACTIONS (8)
  - FATIGUE [None]
  - DRY MOUTH [None]
  - MUSCLE SPASMS [None]
  - DISTURBANCE IN SEXUAL AROUSAL [None]
  - EJACULATION FAILURE [None]
  - INCREASED APPETITE [None]
  - FEELING ABNORMAL [None]
  - ADVERSE EVENT [None]
